FAERS Safety Report 9386085 (Version 1)
Quarter: 2013Q3

REPORT INFORMATION
  Report Type: Spontaneous
  Country: GB (occurrence: GB)
  Receive Date: 20130706
  Receipt Date: 20130706
  Transmission Date: 20140515
  Serious: Yes (Other)
  Sender: FDA-Public Use
  Company Number: GB-B.I. PHARMACEUTICALS,INC./RIDGEFIELD-2013-UK-01347UK

PATIENT
  Age: 71 Year
  Sex: Female
  Weight: 86.8 kg

DRUGS (18)
  1. ATROVENT [Suspect]
     Indication: CHRONIC OBSTRUCTIVE PULMONARY DISEASE
     Dosage: 500 MCG
     Route: 055
     Dates: start: 20130608, end: 20130608
  2. SALBUTAMOL [Suspect]
     Indication: CHRONIC OBSTRUCTIVE PULMONARY DISEASE
     Dosage: 2.5 MG
     Route: 055
     Dates: start: 20130608, end: 20130608
  3. ATORVASTATIN [Concomitant]
     Dosage: 20 MG
     Route: 048
  4. BENDROFLUMETHIAZIDE [Concomitant]
     Dosage: 2.5 MG
     Route: 048
  5. CLARITHROMYCIN [Concomitant]
     Dosage: 500 MG
     Route: 048
  6. CO-CODAMOL [Concomitant]
     Route: 048
  7. DOXYCYCLINE [Concomitant]
     Dosage: 100 MG
     Route: 048
  8. FLUCLOXACILLIN [Concomitant]
     Dosage: 500 MG
     Route: 048
  9. GLANDOSANE [Concomitant]
     Route: 048
  10. HYPROMELLOSE [Concomitant]
     Dosage: USED VIA OCULAR ROUTE AT A 0.3% STRENGTH
  11. MACROGOL [Concomitant]
     Route: 048
  12. OXYTETRACYCLINE [Concomitant]
     Dosage: 250 MG
     Route: 048
  13. PREDNISOLONE [Concomitant]
     Dosage: 5 MG
     Route: 048
  14. SERETIDE [Concomitant]
     Route: 055
  15. SERTRALINE [Concomitant]
     Dosage: 100 MG
     Route: 048
  16. TERBUTALINE [Concomitant]
     Dosage: 500 MCG
     Route: 055
  17. TIOTROPIUM BROMIDE [Concomitant]
     Dosage: 18 MCG
     Route: 055
  18. ZOPICLONE [Concomitant]
     Dosage: 7.5 MG
     Route: 048

REACTIONS (1)
  - Dysphagia [Recovered/Resolved]
